FAERS Safety Report 10238439 (Version 1)
Quarter: 2014Q2

REPORT INFORMATION
  Report Type: Spontaneous
  Country: EC (occurrence: None)
  Receive Date: 20140612
  Receipt Date: 20140612
  Transmission Date: 20141212
  Serious: Yes (Hospitalization, Other)
  Sender: FDA-Public Use
  Company Number: 1394939

PATIENT
  Age: 33 Year
  Sex: Male

DRUGS (1)
  1. PHENYTOIN (NON-SPECIFIC) [Suspect]
     Indication: CONVULSION

REACTIONS (3)
  - Renal failure acute [None]
  - Sepsis [None]
  - Drug reaction with eosinophilia and systemic symptoms [None]
